FAERS Safety Report 5622479-X (Version None)
Quarter: 2008Q1

REPORT INFORMATION
  Report Type: 
  Country: None (occurrence: None)
  Receive Date: 20080114
  Receipt Date: 20070822
  Transmission Date: 20080703
  Serious: Yes (Other)
  Sender: FDA-Public Use
  Company Number: A03200705262

PATIENT
  Age: 43 Year
  Sex: Male
  Weight: 126.1 kg

DRUGS (8)
  1. PLAVIX [Suspect]
     Indication: CORONARY ARTERIAL STENT INSERTION
     Dosage: 75 MG QD - ORAL
     Route: 048
     Dates: start: 20050901, end: 20070401
  2. PLAVIX [Suspect]
     Indication: CORONARY ARTERIAL STENT INSERTION
     Dosage: 75 MG QD - ORAL
     Route: 048
     Dates: start: 20070401
  3. ASACOL [Suspect]
     Indication: INFLAMMATORY BOWEL DISEASE
     Dosage: 400 MG BID - ORAL
     Route: 048
     Dates: start: 20070501
  4. NEXIUM [Suspect]
     Indication: GASTROOESOPHAGEAL REFLUX DISEASE
     Dosage: 40 MG QD - ORAL
     Route: 048
     Dates: start: 20070501
  5. ALTACE [Suspect]
     Indication: HYPERTENSION
     Dosage: 5 MG QD - ORAL
     Route: 048
     Dates: start: 20070501
  6. ATORVASTATIN CALCIUM [Concomitant]
  7. ACETYLSALICYLIC ACID SRT [Concomitant]
  8. GLYCERYL TRINITRATE [Concomitant]

REACTIONS (11)
  - AMNESIA [None]
  - CHEST PAIN [None]
  - DISORIENTATION [None]
  - DISTURBANCE IN ATTENTION [None]
  - DYSPNOEA EXERTIONAL [None]
  - HEADACHE [None]
  - HYPOAESTHESIA [None]
  - INCORRECT DOSE ADMINISTERED [None]
  - MYOCARDIAL INFARCTION [None]
  - OEDEMA PERIPHERAL [None]
  - THROMBOSIS IN DEVICE [None]
